FAERS Safety Report 6162866-7 (Version None)
Quarter: 2009Q2

REPORT INFORMATION
  Report Type: 
  Country: None (occurrence: None)
  Receive Date: 20090421
  Receipt Date: 20081121
  Transmission Date: 20091009
  Serious: No
  Sender: FDA-Public Use
  Company Number: US-ASTRAZENECA-2008UW26192

PATIENT
  Age: 57 Year
  Sex: Female
  Weight: 67.1 kg

DRUGS (5)
  1. TOPROL-XL [Suspect]
     Indication: MYOCARDIAL INFARCTION
     Route: 048
     Dates: start: 20011228
  2. LISINOPRIL [Concomitant]
  3. ASPIRIN [Concomitant]
  4. SIMVASTATIN [Concomitant]
  5. ZALATIN [Concomitant]

REACTIONS (2)
  - DRUG EFFECT DECREASED [None]
  - FEELING HOT [None]
